FAERS Safety Report 9879884 (Version 2)
Quarter: 2014Q1

REPORT INFORMATION
  Report Type: Report from Study
  Country: JP (occurrence: JP)
  Receive Date: 20140206
  Receipt Date: 20140227
  Transmission Date: 20141002
  Serious: Yes (Other)
  Sender: FDA-Public Use
  Company Number: JP-BRISTOL-MYERS SQUIBB COMPANY-20105326

PATIENT
  Age: 57 Year
  Sex: Male

DRUGS (13)
  1. IPILIMUMAB [Suspect]
     Indication: SMALL CELL LUNG CANCER
     Dosage: CYCLE 1:8OCT13 ?CYCLE 2:29OCT13?CYCLE 3:27NOV13?CYCLE 4:17DEC13
     Route: 042
     Dates: start: 20131129, end: 20131219
  2. CARBOPLATIN [Suspect]
     Indication: SMALL CELL LUNG CANCER
     Dosage: 1 DF: AUC 5.0?CYCLE 1:8OCT13 ?CYCLE 2:29OCT13?CYCLE 3:27NOV13?CYCLE 4:17DEC13
     Route: 042
     Dates: start: 20131008, end: 20131217
  3. ETOPOSIDE [Suspect]
     Indication: SMALL CELL LUNG CANCER
     Dosage: CYCLE 1:8OCT13 ?CYCLE 2:29OCT13?CYCLE 3:27NOV13?CYCLE 4:17DEC13
     Route: 042
     Dates: start: 20131008, end: 20131219
  4. BLINDED: PLACEBO [Suspect]
     Indication: SMALL CELL LUNG CANCER
     Dosage: CYCLE 1:8OCT13 ?CYCLE 2:29OCT13?CYCLE 3:27NOV13?CYCLE 4:17DEC13
     Route: 042
     Dates: start: 20131129, end: 20131219
  5. LOXOPROFEN [Concomitant]
     Dates: start: 20131002
  6. REBAMIPIDE [Concomitant]
     Dates: start: 20131002
  7. OXYCODONE HCL [Concomitant]
     Dates: start: 20131011
  8. DIFLUPREDNATE [Concomitant]
     Dosage: DIFLUPREDNATE OINTMENT
     Dates: start: 20131126
  9. DIFLUPREDNATE [Concomitant]
     Dosage: DIFLUPREDNATE CREAM
     Dates: start: 20131206
  10. SENNOSIDES A AND B [Concomitant]
     Dates: start: 20131128
  11. LANSOPRAZOLE [Concomitant]
     Dates: start: 20131206
  12. HEPARINOID [Concomitant]
     Dates: start: 20131206
  13. CODEINE PHOSPHATE [Concomitant]
     Dates: start: 20130927

REACTIONS (1)
  - Rheumatoid arthritis [Recovered/Resolved]
